FAERS Safety Report 21865416 (Version 2)
Quarter: 2023Q1

REPORT INFORMATION
  Report Type: Spontaneous
  Country: US (occurrence: US)
  Receive Date: 20230116
  Receipt Date: 20230220
  Transmission Date: 20230418
  Serious: No
  Sender: FDA-Public Use
  Company Number: US-PFIZER INC-PV202300007770

PATIENT
  Sex: Female

DRUGS (1)
  1. KERYDIN [Suspect]
     Active Substance: TAVABOROLE
     Indication: Onychomycosis
     Dosage: UNK

REACTIONS (1)
  - Therapeutic product effect incomplete [Unknown]
